FAERS Safety Report 6111898-3 (Version None)
Quarter: 2009Q1

REPORT INFORMATION
  Report Type: 
  Country: None (occurrence: None)
  Receive Date: 20090311
  Receipt Date: 20080923
  Transmission Date: 20090719
  Serious: No
  Sender: FDA-Public Use
  Company Number: US-TYCO HEALTHCARE/MALLINCKRODT-T200801530

PATIENT

DRUGS (1)
  1. SODIUM IODIDE I 123 [Suspect]
     Indication: SCAN THYROID GLAND
     Dosage: 2 CAPSULES, SINGLE
     Route: 048
     Dates: start: 20080917, end: 20080917

REACTIONS (2)
  - ABDOMINAL PAIN [None]
  - DIARRHOEA [None]
